FAERS Safety Report 10798709 (Version 2)
Quarter: 2015Q1

REPORT INFORMATION
  Report Type: Spontaneous
  Country: DE (occurrence: DE)
  Receive Date: 20150216
  Receipt Date: 20150312
  Transmission Date: 20150721
  Serious: Yes (Hospitalization)
  Sender: FDA-Public Use
  Company Number: DE-ABBVIE-14P-062-1324454-00

PATIENT
  Sex: Female

DRUGS (2)
  1. DUODOPA [Suspect]
     Active Substance: CARBIDOPA\LEVODOPA
     Dosage: MD 12.0 ML, CRD 7.0 ML/HR, ED 2.0 ML
     Route: 050
     Dates: start: 20140207
  2. DUODOPA [Suspect]
     Active Substance: CARBIDOPA\LEVODOPA
     Indication: PARKINSON^S DISEASE
     Dosage: MD 12.0 ML, CRD 7.0 ML/HR, ED 2.0 ML
     Route: 050
     Dates: start: 20140117, end: 20140207

REACTIONS (2)
  - General physical health deterioration [Unknown]
  - Device dislocation [Unknown]
